FAERS Safety Report 22590974 (Version 1)
Quarter: 2023Q2

REPORT INFORMATION
  Report Type: Spontaneous
  Country: US (occurrence: US)
  Receive Date: 20230612
  Receipt Date: 20230612
  Transmission Date: 20230722
  Serious: No
  Sender: FDA-Public Use
  Company Number: US-MYLANLABS-2023M1054638

PATIENT
  Sex: Male

DRUGS (1)
  1. METHYLPHENIDATE [Suspect]
     Active Substance: METHYLPHENIDATE
     Indication: Narcolepsy
     Dosage: 20 MILLIGRAM (9 HRS)
     Route: 062

REACTIONS (4)
  - Application site erythema [Unknown]
  - Application site pain [Unknown]
  - Lack of application site rotation [Unknown]
  - Off label use [Unknown]
